FAERS Safety Report 24254407 (Version 1)
Quarter: 2024Q3

REPORT INFORMATION
  Report Type: Spontaneous
  Country: US (occurrence: None)
  Receive Date: 20240826
  Receipt Date: 20240826
  Transmission Date: 20241016
  Serious: Yes (Other)
  Sender: Public
  Company Number: None

PATIENT
  Sex: Female
  Weight: 117 kg

DRUGS (1)
  1. AZITHROMYCIN [Suspect]
     Active Substance: AZITHROMYCIN
     Indication: Tooth extraction
     Dates: start: 20240825

REACTIONS (2)
  - Hypoaesthesia [None]
  - Oropharyngeal pain [None]

NARRATIVE: CASE EVENT DATE: 20240825
